FAERS Safety Report 8430689-1 (Version None)
Quarter: 2012Q2

REPORT INFORMATION
  Report Type: 
  Country: None (occurrence: None)
  Receive Date: 20120323
  Receipt Date: 20110714
  Transmission Date: 20120825
  Serious: Yes (Hospitalization)
  Sender: FDA-Public Use
  Company Number: 163-21880-11061064

PATIENT
  Age: 85 Year
  Sex: Female

DRUGS (4)
  1. VELCADE [Concomitant]
  2. REVLIMID [Suspect]
     Indication: MULTIPLE MYELOMA
     Dosage: 5 MG, QD X 7 DAYS/ 7 DAYS OFF, PO
     Route: 048
     Dates: start: 20110408
  3. ASPRIN (UNKNOWN) [Concomitant]
  4. DECADRON [Concomitant]

REACTIONS (1)
  - THROMBOSIS [None]
